FAERS Safety Report 6078670-4 (Version None)
Quarter: 2009Q1

REPORT INFORMATION
  Report Type: 
  Country: None (occurrence: None)
  Receive Date: 20090216
  Receipt Date: 20090204
  Transmission Date: 20090719
  Serious: Yes (Disabling, Other)
  Sender: FDA-Public Use
  Company Number: PHEH2007US02887

PATIENT
  Sex: Female

DRUGS (12)
  1. AREDIA [Suspect]
  2. ZOMETA [Suspect]
  3. FLONASE [Concomitant]
     Dosage: 2 SPRAYS IN EACH NOSTRIL DAILY
     Dates: start: 20020501
  4. MINOCYCLINE [Concomitant]
     Dosage: 100MG CAPSULE
     Dates: start: 20020501
  5. METROGEL [Concomitant]
     Dosage: .75% 45GM
     Dates: start: 20020501
  6. AMOXICILLIN [Concomitant]
     Dosage: 500 MG, TID
     Dates: start: 20020901
  7. AMOXICILLIN SODIUM W/CLAVULANATE POTASSIUM [Concomitant]
     Dosage: 875MG/125MG
     Dates: start: 20030701
  8. PROMETHAZINE [Concomitant]
     Dosage: 25MG EVERY 6 HOURS AS NEEDED
     Dates: start: 20030701
  9. AZITHROMYCIN [Concomitant]
     Dosage: TAKE 2 TABLETS THEN TAKE 1 TABLET FOR 4 MORE DAYS
     Dates: start: 20061101
  10. CLINDAMYCIN HYDROCHLORIDE [Concomitant]
     Dosage: 150MG TAKE ONE TABLET EVERY 6 HOURS
     Dates: start: 20070301
  11. DEXAMETHASONE [Concomitant]
     Dosage: 4MG TAKE ONE TABLET 12HOURS PRIOR TO CHEMOTHERAPY AND 1 TABLET 12 HOURS AFTER CHEMOTHERAPY
     Dates: start: 20070701
  12. LORAZEPAM [Concomitant]
     Dosage: 0.5MG TAKE ONE TABLET EVERY 8-12 HOURS AS NEEDED

REACTIONS (5)
  - ANXIETY [None]
  - DECREASED INTEREST [None]
  - GENERAL PHYSICAL HEALTH DETERIORATION [None]
  - OSTEONECROSIS [None]
  - PAIN [None]
